FAERS Safety Report 14572467 (Version 2)
Quarter: 2018Q2

REPORT INFORMATION
  Report Type: Other
  Country: CA (occurrence: CA)
  Receive Date: 20180226
  Receipt Date: 20180422
  Transmission Date: 20180711
  Serious: Yes (Life-Threatening, Hospitalization, Disabling, Other)
  Sender: FDA-Public Use
  Company Number: CA-APOTEX-2018AP006726

PATIENT
  Age: 49 Year
  Sex: Female

DRUGS (18)
  1. ESCITALOPRAM [Suspect]
     Active Substance: ESCITALOPRAM OXALATE
     Dosage: UNK
     Route: 065
  2. INSULIN [Concomitant]
     Active Substance: INSULIN NOS
     Dosage: 70 IU, UNK
     Route: 065
  3. POTASSIUM CHLORIDE. [Concomitant]
     Active Substance: POTASSIUM CHLORIDE
     Indication: HYPOKALAEMIA
     Dosage: UNK
     Route: 042
  4. POTASSIUM CHLORIDE. [Concomitant]
     Active Substance: POTASSIUM CHLORIDE
     Dosage: UNK
     Route: 048
  5. INSULIN [Concomitant]
     Active Substance: INSULIN NOS
     Indication: PRODUCT USED FOR UNKNOWN INDICATION
     Dosage: UNK
     Route: 040
  6. AMLODIPINE [Suspect]
     Active Substance: AMLODIPINE BESYLATE
     Dosage: 150 MG, UNK
     Route: 065
  7. RISPERIDONE. [Suspect]
     Active Substance: RISPERIDONE
     Dosage: UNK
     Route: 048
  8. NOREPINEPHRINE. [Suspect]
     Active Substance: NOREPINEPHRINE
     Indication: BLOOD PRESSURE MEASUREMENT
     Dosage: 30 ?G, UNK
     Route: 065
  9. VASOPRESSIN. [Suspect]
     Active Substance: VASOPRESSIN
     Indication: BLOOD PRESSURE MEASUREMENT
  10. GLUCOSE [Suspect]
     Active Substance: DEXTROSE
     Indication: RESUSCITATION
     Dosage: UNK
     Route: 065
  11. ESCITALOPRAM [Suspect]
     Active Substance: ESCITALOPRAM OXALATE
     Indication: INTENTIONAL OVERDOSE
     Dosage: UNK
     Route: 048
  12. EPINEPHRINE. [Suspect]
     Active Substance: EPINEPHRINE
     Indication: BLOOD PRESSURE MEASUREMENT
     Dosage: 30 ?G, UNK
     Route: 065
  13. ACTIVATED CHARCOAL [Concomitant]
     Active Substance: ACTIVATED CHARCOAL
     Indication: GASTRIC LAVAGE
     Dosage: 50 G, UNK
     Route: 065
  14. AMLODIPINE [Suspect]
     Active Substance: AMLODIPINE BESYLATE
     Indication: INTENTIONAL OVERDOSE
     Dosage: 150 MG, EVERY 1 DAY
     Route: 048
  15. AMLODIPINE [Suspect]
     Active Substance: AMLODIPINE BESYLATE
     Dosage: UNK
     Route: 048
  16. RISPERIDONE. [Suspect]
     Active Substance: RISPERIDONE
     Indication: PRODUCT USED FOR UNKNOWN INDICATION
     Dosage: 6 MG, EVERY 1 DAY
     Route: 048
  17. ESCITALOPRAM [Suspect]
     Active Substance: ESCITALOPRAM OXALATE
     Indication: INTENTIONAL OVERDOSE
     Dosage: 60 MG, QD
     Route: 048
  18. VASOPRESSIN. [Suspect]
     Active Substance: VASOPRESSIN
     Indication: PRODUCT USED FOR UNKNOWN INDICATION
     Dosage: UNK
     Route: 065

REACTIONS (30)
  - Blindness cortical [Recovering/Resolving]
  - Anuria [Not Recovered/Not Resolved]
  - Hypokalaemia [Not Recovered/Not Resolved]
  - Hypotension [Not Recovered/Not Resolved]
  - Tachycardia [Not Recovered/Not Resolved]
  - Reversible cerebral vasoconstriction syndrome [Not Recovered/Not Resolved]
  - Cerebral infarction [Not Recovered/Not Resolved]
  - Blindness [Not Recovered/Not Resolved]
  - Cytotoxic oedema [Not Recovered/Not Resolved]
  - Embolism arterial [Recovering/Resolving]
  - Hypothermia [Not Recovered/Not Resolved]
  - Depressed level of consciousness [Recovered/Resolved]
  - Optic atrophy [Recovered/Resolved]
  - Pulmonary oedema [Not Recovered/Not Resolved]
  - Visual impairment [Recovering/Resolving]
  - Altered state of consciousness [Not Recovered/Not Resolved]
  - Circulatory collapse [Recovered/Resolved]
  - Hypoglycaemia [Not Recovered/Not Resolved]
  - Toxicity to various agents [Not Recovered/Not Resolved]
  - Colour blindness [Not Recovered/Not Resolved]
  - Overdose [Not Recovered/Not Resolved]
  - Retinal ischaemia [Recovering/Resolving]
  - Intentional overdose [Not Recovered/Not Resolved]
  - Hyperdynamic left ventricle [Recovered/Resolved]
  - Ischaemia [Not Recovered/Not Resolved]
  - Shock [Recovered/Resolved]
  - Condition aggravated [Recovered/Resolved]
  - Optic nerve injury [Not Recovered/Not Resolved]
  - Embolism [Not Recovered/Not Resolved]
  - Cardiogenic shock [Not Recovered/Not Resolved]
